FAERS Safety Report 24140424 (Version 2)
Quarter: 2024Q3

REPORT INFORMATION
  Report Type: Spontaneous
  Country: CN (occurrence: CN)
  Receive Date: 20240726
  Receipt Date: 20240731
  Transmission Date: 20241016
  Serious: Yes (Hospitalization, Other)
  Sender: TAKEDA
  Company Number: CN-HUTCHMED LIMITED-HMP2024CN01680

PATIENT
  Age: 46 Year
  Sex: Male
  Weight: 65 kg

DRUGS (1)
  1. FRUQUINTINIB [Suspect]
     Active Substance: FRUQUINTINIB
     Indication: Rectal cancer
     Dosage: 3 MILLIGRAM, QD
     Route: 048
     Dates: start: 20230919, end: 20240714

REACTIONS (2)
  - Myelosuppression [Recovering/Resolving]
  - Haemorrhage [Unknown]

NARRATIVE: CASE EVENT DATE: 20240713
